FAERS Safety Report 22084578 (Version 1)
Quarter: 2023Q1

REPORT INFORMATION
  Report Type: Report from Study
  Country: BR (occurrence: BR)
  Receive Date: 20230310
  Receipt Date: 20230310
  Transmission Date: 20230418
  Serious: Yes (Other)
  Sender: FDA-Public Use
  Company Number: BR-JNJFOC-20230314876

PATIENT
  Age: 46 Year
  Sex: Male
  Weight: 98 kg

DRUGS (2)
  1. INFLIXIMAB [Suspect]
     Active Substance: INFLIXIMAB
     Indication: Crohn^s disease
     Dosage: 4 OR 5 AMPOULES MONTHLY
     Route: 041
     Dates: start: 20171219
  2. INFLIXIMAB [Suspect]
     Active Substance: INFLIXIMAB
     Route: 041

REACTIONS (6)
  - Lymphoma [Recovered/Resolved]
  - Intestinal stenosis [Unknown]
  - Adverse event [Unknown]
  - Pain [Recovered/Resolved]
  - Mucous stools [Recovered/Resolved]
  - Off label use [Unknown]
